FAERS Safety Report 4660048-9 (Version None)
Quarter: 2005Q2

REPORT INFORMATION
  Report Type: 
  Country: None (occurrence: None)
  Receive Date: 20050512
  Receipt Date: 20050428
  Transmission Date: 20051028
  Serious: Yes (Hospitalization, Other)
  Sender: FDA-Public Use
  Company Number: PT-JNJFOC-20050402453

PATIENT
  Sex: Female
  Weight: 53 kg

DRUGS (6)
  1. IMODIUM [Suspect]
     Route: 049
  2. IMODIUM [Suspect]
     Route: 049
  3. MUCAL [Concomitant]
     Route: 049
  4. MUCAL [Concomitant]
     Route: 049
  5. MUCAL [Concomitant]
     Route: 049
  6. COLIFAGINA [Concomitant]
     Route: 049

REACTIONS (1)
  - PANCREATITIS ACUTE [None]
